FAERS Safety Report 8307587-7 (Version None)
Quarter: 2012Q2

REPORT INFORMATION
  Report Type: 
  Country: None (occurrence: None)
  Receive Date: 20120424
  Receipt Date: 20120417
  Transmission Date: 20120825
  Serious: Yes (Congenital Anomaly)
  Sender: FDA-Public Use
  Company Number: CZ-TEVA-334314ISR

PATIENT
  Sex: Male

DRUGS (2)
  1. LEVONORGESTREL [Suspect]
     Indication: PRODUCT USED FOR UNKNOWN INDICATION
     Route: 064
  2. TRIMETHOPRIM + SULFAMETHOXAZOLE [Suspect]
     Indication: PRODUCT USED FOR UNKNOWN INDICATION
     Dosage: 1920 MG
     Route: 064

REACTIONS (2)
  - CAUDAL REGRESSION SYNDROME [None]
  - FOETAL EXPOSURE DURING PREGNANCY [None]
